FAERS Safety Report 18384871 (Version 1)
Quarter: 2020Q4

REPORT INFORMATION
  Report Type: Spontaneous
  Country: US (occurrence: US)
  Receive Date: 20201014
  Receipt Date: 20201014
  Transmission Date: 20210114
  Serious: Yes (Other)
  Sender: FDA-Public Use
  Company Number: NVSC2020US271741

PATIENT

DRUGS (1)
  1. MAYZENT [Suspect]
     Active Substance: SIPONIMOD
     Indication: RELAPSING MULTIPLE SCLEROSIS
     Dosage: UNK, STARTED 8 MONTHS AGO
     Route: 065

REACTIONS (2)
  - Papillary thyroid cancer [Not Recovered/Not Resolved]
  - Thyroid hormones increased [Unknown]
